FAERS Safety Report 5021172-4 (Version None)
Quarter: 2006Q2

REPORT INFORMATION
  Report Type: 
  Country: None (occurrence: None)
  Receive Date: 20060425
  Receipt Date: 20050812
  Transmission Date: 20061013
  Serious: Yes (Disabling, Other)
  Sender: FDA-Public Use
  Company Number: WAES 0508USA02247

PATIENT
  Age: 3 Year
  Sex: Male
  Weight: 14.5151 kg

DRUGS (1)
  1. SINGULAIR [Suspect]
     Indication: ASTHMA
     Dosage: 5 MG DAILY PO
     Route: 048
     Dates: start: 20050301, end: 20050301

REACTIONS (3)
  - PRESCRIBED OVERDOSE [None]
  - SERUM SICKNESS [None]
  - URTICARIA [None]
